FAERS Safety Report 7655052-2 (Version None)
Quarter: 2011Q3

REPORT INFORMATION
  Report Type: 
  Country: None (occurrence: None)
  Receive Date: 20110804
  Receipt Date: 20110726
  Transmission Date: 20111222
  Serious: Yes (Other)
  Sender: FDA-Public Use
  Company Number: NL-TEVA-293751ISR

PATIENT
  Sex: Female
  Weight: 82 kg

DRUGS (1)
  1. METHOTREXATE [Suspect]
     Indication: SARCOIDOSIS
     Dates: start: 20100503, end: 20110504

REACTIONS (1)
  - HODGKIN'S DISEASE [None]
